FAERS Safety Report 17261865 (Version 1)
Quarter: 2020Q1

REPORT INFORMATION
  Report Type: Spontaneous
  Country: US (occurrence: US)
  Receive Date: 20200113
  Receipt Date: 20200113
  Transmission Date: 20200409
  Serious: No
  Sender: FDA-Public Use
  Company Number: US-SCIEGEN PHARMACEUTICALS INC-2020SCISPO00001

PATIENT

DRUGS (1)
  1. SOLIFENACIN SUCCINATE TABLETS [Suspect]
     Active Substance: SOLIFENACIN SUCCINATE

REACTIONS (3)
  - Nausea [Unknown]
  - Headache [Unknown]
  - Asthenia [Unknown]
